FAERS Safety Report 10158430 (Version 4)
Quarter: 2015Q1

REPORT INFORMATION
  Report Type: Report from Study
  Country: AU (occurrence: AU)
  Receive Date: 20140507
  Receipt Date: 20150223
  Transmission Date: 20150720
  Serious: Yes (Hospitalization)
  Sender: FDA-Public Use
  Company Number: PHHY2014AU055118

PATIENT
  Age: 46 Year
  Sex: Male

DRUGS (7)
  1. DOCUSATE W/SENNA [Concomitant]
     Indication: CONSTIPATION
     Dosage: 2 DF, BID
     Route: 048
  2. CLOZARIL [Suspect]
     Active Substance: CLOZAPINE
     Dosage: 12.5 MG, QD
     Route: 048
     Dates: start: 20140505
  3. CLOZARIL [Suspect]
     Active Substance: CLOZAPINE
     Dosage: 400 MG, QHS
     Route: 048
     Dates: start: 201410, end: 20141201
  4. CLOZARIL [Suspect]
     Active Substance: CLOZAPINE
     Dosage: UNK
     Route: 048
     Dates: start: 20131220
  5. CLOZARIL [Suspect]
     Active Substance: CLOZAPINE
     Dosage: 400 OT
     Route: 048
     Dates: start: 20141208
  6. CLOZARIL [Suspect]
     Active Substance: CLOZAPINE
     Indication: SCHIZOPHRENIA
     Dosage: 25 MG, QD
     Route: 048
     Dates: start: 19970519
  7. ZUCLOPENTHIXOL [Concomitant]
     Active Substance: ZUCLOPENTHIXOL
     Indication: SCHIZOPHRENIA
     Dosage: 200 MG, FORTNIGHTLY
     Route: 030
     Dates: start: 201406

REACTIONS (8)
  - Aggression [Recovering/Resolving]
  - Psychotic disorder [Recovering/Resolving]
  - Paranoia [Recovering/Resolving]
  - Schizophrenia, disorganised type [Recovering/Resolving]
  - Substance abuse [Recovering/Resolving]
  - Antipsychotic drug level below therapeutic [Unknown]
  - White blood cell count increased [Unknown]
  - Schizophrenia [Unknown]

NARRATIVE: CASE EVENT DATE: 20140430
